FAERS Safety Report 8062218-9 (Version None)
Quarter: 2012Q1

REPORT INFORMATION
  Report Type: 
  Country: None (occurrence: None)
  Receive Date: 20120123
  Receipt Date: 20120109
  Transmission Date: 20120608
  Serious: Yes (Hospitalization)
  Sender: FDA-Public Use
  Company Number: FR-MYLANLABS-2012S1000481

PATIENT
  Age: 12 Year
  Sex: Male

DRUGS (37)
  1. KIDROLASE [Suspect]
     Dates: start: 20111114
  2. DOXORUBICIN HCL [Suspect]
     Indication: PRODUCT USED FOR UNKNOWN INDICATION
     Route: 042
     Dates: start: 20111107
  3. DEXAMETHASONE [Suspect]
     Dates: start: 20111120
  4. KIDROLASE [Suspect]
     Dates: start: 20111121
  5. DOXORUBICIN HCL [Suspect]
     Dates: start: 20111121
  6. ELDISINE [Suspect]
     Indication: PRODUCT USED FOR UNKNOWN INDICATION
     Route: 042
     Dates: start: 20111107
  7. ONDANSETRON [Suspect]
     Dates: start: 20111121
  8. ONDANSETRON [Suspect]
     Dates: start: 20111212
  9. METHOTREXATE [Suspect]
     Indication: PRODUCT USED FOR UNKNOWN INDICATION
     Route: 037
     Dates: start: 20111108
  10. THIOGUANINE [Suspect]
     Dates: start: 20111206, end: 20111221
  11. CYTARABINE [Suspect]
     Route: 037
     Dates: start: 20111108
  12. DOXORUBICIN HCL [Suspect]
     Dates: start: 20111114
  13. ELDISINE [Suspect]
     Dates: start: 20111121
  14. ONDANSETRON [Suspect]
     Dates: start: 20111118
  15. ONDANSETRON [Suspect]
     Dates: start: 20111205
  16. ETOPOSIDE [Suspect]
     Dates: start: 20111219
  17. ONDANSETRON [Suspect]
     Dates: start: 20111109
  18. ONDANSETRON [Suspect]
     Dates: start: 20111114
  19. THIOGUANINE [Suspect]
     Indication: PRODUCT USED FOR UNKNOWN INDICATION
     Route: 048
     Dates: start: 20111206, end: 20111221
  20. CYTARABINE [Suspect]
     Route: 042
     Dates: start: 20111219, end: 20111220
  21. KIDROLASE [Suspect]
     Dates: start: 20111118
  22. ELDISINE [Suspect]
     Dates: start: 20111114
  23. DEPO-MEDROL [Suspect]
     Indication: PRODUCT USED FOR UNKNOWN INDICATION
     Route: 037
     Dates: start: 20111108
  24. DEPO-MEDROL [Suspect]
     Dates: start: 20111207
  25. ETOPOSIDE [Suspect]
     Indication: PRODUCT USED FOR UNKNOWN INDICATION
     Route: 042
     Dates: start: 20111205, end: 20111220
  26. ONDANSETRON [Suspect]
     Dates: start: 20111116
  27. METHOTREXATE [Suspect]
     Route: 037
     Dates: start: 20111207
  28. CYTARABINE [Suspect]
     Indication: PRODUCT USED FOR UNKNOWN INDICATION
     Route: 042
     Dates: start: 20111205, end: 20111206
  29. KIDROLASE [Suspect]
     Indication: PRODUCT USED FOR UNKNOWN INDICATION
     Route: 042
     Dates: start: 20111109
  30. KIDROLASE [Suspect]
     Dates: start: 20111116
  31. CYTARABINE [Suspect]
     Route: 042
     Dates: start: 20111212, end: 20111213
  32. ETOPOSIDE [Suspect]
     Dates: start: 20111212
  33. ONDANSETRON [Suspect]
     Indication: PRODUCT USED FOR UNKNOWN INDICATION
     Route: 042
     Dates: start: 20111207, end: 20111220
  34. ONDANSETRON [Suspect]
     Dates: start: 20111219
  35. CYTARABINE [Suspect]
     Route: 037
     Dates: start: 20111207
  36. KIDROLASE [Suspect]
     Dates: start: 20111111
  37. DEXAMETHASONE [Suspect]
     Indication: PRODUCT USED FOR UNKNOWN INDICATION
     Route: 048
     Dates: start: 20111107

REACTIONS (1)
  - VENOOCCLUSIVE LIVER DISEASE [None]
